FAERS Safety Report 7502595-8 (Version None)
Quarter: 2011Q2

REPORT INFORMATION
  Report Type: 
  Country: None (occurrence: None)
  Receive Date: 20110524
  Receipt Date: 20110524
  Transmission Date: 20111010
  Serious: Yes (Hospitalization)
  Sender: FDA-Public Use
  Company Number: None

PATIENT
  Sex: Female
  Weight: 63 kg

DRUGS (2)
  1. CISPLATIN [Suspect]
     Dosage: 86MG
     Dates: end: 20100406
  2. PACLITAXEL [Suspect]
     Dosage: 232MG
     Dates: end: 20100406

REACTIONS (3)
  - DIZZINESS [None]
  - LEUKOCYTOSIS [None]
  - BLOOD PRESSURE DECREASED [None]
